FAERS Safety Report 17876515 (Version 3)
Quarter: 2020Q3

REPORT INFORMATION
  Report Type: Spontaneous
  Country: LT (occurrence: LT)
  Receive Date: 20200609
  Receipt Date: 20200707
  Transmission Date: 20201103
  Serious: Yes (Other)
  Sender: FDA-Public Use
  Company Number: LT-VELOXIS PHARMACEUTICALS-2020VELLT-000550

PATIENT
  Age: 69 Year
  Sex: Female

DRUGS (12)
  1. MYCOPHENOLATE MOFETIL. [Suspect]
     Active Substance: MYCOPHENOLATE MOFETIL
     Indication: PROPHYLAXIS AGAINST TRANSPLANT REJECTION
  2. DIFLUCORTOLONE [Concomitant]
     Active Substance: DIFLUCORTOLONE
     Indication: CRYPTOCOCCOSIS
  3. ENVARSUS XR [Suspect]
     Active Substance: TACROLIMUS
     Indication: PROPHYLAXIS AGAINST TRANSPLANT REJECTION
  4. ITRACONAZOL [Suspect]
     Active Substance: ITRACONAZOLE
     Indication: CRYPTOCOCCOSIS
     Dosage: UNK
  5. FLUCONAZOLE. [Concomitant]
     Active Substance: FLUCONAZOLE
     Indication: CRYPTOCOCCOSIS
  6. MYCOPHENOLATE MOFETIL. [Suspect]
     Active Substance: MYCOPHENOLATE MOFETIL
     Indication: IMMUNOSUPPRESSANT DRUG THERAPY
     Dosage: 360 MG, 0.5 DAY;720 MILLIGRAM DAILY
     Route: 065
  7. METHYLPREDNISOLONE. [Suspect]
     Active Substance: METHYLPREDNISOLONE
     Indication: IMMUNOSUPPRESSANT DRUG THERAPY
     Dosage: 4 MG, QD
     Route: 065
  8. CLOTRIMAZOLE. [Concomitant]
     Active Substance: CLOTRIMAZOLE
     Indication: CRYPTOCOCCOSIS
  9. ENVARSUS XR [Suspect]
     Active Substance: TACROLIMUS
     Indication: IMMUNOSUPPRESSANT DRUG THERAPY
     Dosage: 2 MG, QD; SYSTEMIC
     Route: 065
  10. METHYLPREDNISOLONE. [Suspect]
     Active Substance: METHYLPREDNISOLONE
     Indication: PROPHYLAXIS AGAINST TRANSPLANT REJECTION
  11. KETOCONAZOLE. [Concomitant]
     Active Substance: KETOCONAZOLE
     Indication: CRYPTOCOCCOSIS
  12. ISOCONAZOLE [Concomitant]
     Active Substance: ISOCONAZOLE
     Indication: CRYPTOCOCCOSIS

REACTIONS (6)
  - Haematoma [Unknown]
  - Muscular weakness [Unknown]
  - Swelling face [Unknown]
  - Gait disturbance [Unknown]
  - Cryptococcal cutaneous infection [Recovered/Resolved]
  - Fungal skin infection [Recovered/Resolved]
